FAERS Safety Report 23437187 (Version 1)
Quarter: 2024Q1

REPORT INFORMATION
  Report Type: Spontaneous
  Country: US (occurrence: US)
  Receive Date: 20240124
  Receipt Date: 20240124
  Transmission Date: 20240409
  Serious: Yes (Other)
  Sender: FDA-Public Use
  Company Number: US-COOPERSURGICAL, INC.-US-2023CPS004032

PATIENT
  Age: 44 Year
  Sex: Female
  Weight: 81.179 kg

DRUGS (1)
  1. PARAGARD T 380A [Suspect]
     Active Substance: COPPER
     Indication: Contraception
     Dosage: UNK
     Route: 015
     Dates: start: 20210608, end: 20230303

REACTIONS (10)
  - Adnexa uteri cyst [Unknown]
  - Embedded device [Recovered/Resolved]
  - Uterine perforation [Recovered/Resolved]
  - Hiatus hernia [Unknown]
  - Aortic elongation [Unknown]
  - Intervertebral disc degeneration [Unknown]
  - Lung opacity [Unknown]
  - Diverticulum intestinal [Unknown]
  - Weight decreased [Unknown]
  - Device dislocation [Recovered/Resolved]

NARRATIVE: CASE EVENT DATE: 20230221
